FAERS Safety Report 16266914 (Version 2)
Quarter: 2019Q2

REPORT INFORMATION
  Report Type: Spontaneous
  Country: US (occurrence: US)
  Receive Date: 20190502
  Receipt Date: 20190515
  Transmission Date: 20190711
  Serious: Yes (Other)
  Sender: FDA-Public Use
  Company Number: US-SA-2019SA117401

PATIENT
  Age: 68 Year
  Sex: Female

DRUGS (1)
  1. TOUJEO [Suspect]
     Active Substance: INSULIN GLARGINE
     Indication: DIABETES MELLITUS
     Dosage: 10 U, QD
     Route: 065

REACTIONS (3)
  - Blood glucose increased [Unknown]
  - Drug ineffective [Unknown]
  - Diabetes mellitus inadequate control [Unknown]
